FAERS Safety Report 8093027-2 (Version None)
Quarter: 2012Q1

REPORT INFORMATION
  Report Type: 
  Country: None (occurrence: None)
  Receive Date: 20120128
  Receipt Date: 20110912
  Transmission Date: 20120608
  Serious: Yes (Other)
  Sender: FDA-Public Use
  Company Number: US-ABBOTT-10P-163-0691924-00

PATIENT
  Age: 90 Year
  Sex: Female

DRUGS (15)
  1. TRAVATAN [Concomitant]
     Indication: GLAUCOMA
  2. HUMIRA [Suspect]
     Indication: CROHN'S DISEASE
     Dates: start: 20071101
  3. ADVAIR DISKUS 100/50 [Concomitant]
     Indication: PRODUCT USED FOR UNKNOWN INDICATION
     Route: 055
  4. IMODIUM [Concomitant]
     Indication: DIARRHOEA
  5. PRILOSEC [Concomitant]
     Indication: PRODUCT USED FOR UNKNOWN INDICATION
  6. METOPROLOL TARTRATE [Concomitant]
     Indication: PRODUCT USED FOR UNKNOWN INDICATION
  7. CRESTOR [Concomitant]
     Indication: PRODUCT USED FOR UNKNOWN INDICATION
     Dosage: 5 MG DAILY
  8. COLAZAL [Concomitant]
     Indication: PRODUCT USED FOR UNKNOWN INDICATION
     Dosage: 3 TABS TID
  9. LISINOPRIL [Concomitant]
     Indication: PRODUCT USED FOR UNKNOWN INDICATION
     Dosage: 5 MG DAILY
  10. EYE DROPS [Concomitant]
     Indication: EYE PRURITUS
     Dosage: ONE DROP AM OU
  11. ASPIRIN [Concomitant]
     Indication: PRODUCT USED FOR UNKNOWN INDICATION
  12. SPIRONOLACTONE [Concomitant]
     Indication: PRODUCT USED FOR UNKNOWN INDICATION
  13. ALBUTEROL [Concomitant]
     Indication: PRODUCT USED FOR UNKNOWN INDICATION
  14. LASIX [Concomitant]
     Indication: PRODUCT USED FOR UNKNOWN INDICATION
  15. LEVOTHYROXINE SODIUM [Concomitant]
     Indication: THYROID DISORDER
     Dosage: 100 MCG DAILY

REACTIONS (6)
  - NASOPHARYNGITIS [None]
  - DRUG DOSE OMISSION [None]
  - MUSCLE SWELLING [None]
  - MYALGIA [None]
  - MYOCARDIAL INFARCTION [None]
  - MALAISE [None]
